FAERS Safety Report 9093579 (Version 1)
Quarter: 2013Q1

REPORT INFORMATION
  Report Type: Spontaneous
  Country: US (occurrence: US)
  Receive Date: 20130218
  Receipt Date: 20130218
  Transmission Date: 20140127
  Serious: Yes (Other)
  Sender: FDA-Public Use
  Company Number: US-BAXTER-2013BAX005586

PATIENT
  Sex: Male

DRUGS (2)
  1. DIANEAL LOW CALCIUM [Suspect]
     Indication: RENAL FAILURE CHRONIC
     Dosage: 2.8 L
     Route: 033
     Dates: start: 20120731, end: 20130102
  2. DIANEAL LOW CALCIUM [Suspect]
     Indication: PERITONEAL DIALYSIS
     Route: 033

REACTIONS (7)
  - Incisional hernia [Recovering/Resolving]
  - Condition aggravated [Recovering/Resolving]
  - Device leakage [Recovering/Resolving]
  - Procedural site reaction [Recovering/Resolving]
  - Weight decreased [Unknown]
  - Excessive skin [Unknown]
  - Impaired healing [Unknown]
